FAERS Safety Report 22018396 (Version 3)
Quarter: 2023Q2

REPORT INFORMATION
  Report Type: Report from Study
  Country: JP (occurrence: JP)
  Receive Date: 20230221
  Receipt Date: 20230517
  Transmission Date: 20230722
  Serious: Yes (Other)
  Sender: FDA-Public Use
  Company Number: JP-TAKEDA-2023TJP002358

PATIENT
  Age: 65 Year
  Sex: Female
  Weight: 45 kg

DRUGS (6)
  1. VON WILLEBRAND FACTOR HUMAN [Suspect]
     Active Substance: VON WILLEBRAND FACTOR HUMAN
     Indication: Von Willebrand^s disease
     Dosage: 3900 INTERNATIONAL UNIT, 1/WEEK
     Route: 042
     Dates: start: 20201112, end: 20210709
  2. VON WILLEBRAND FACTOR HUMAN [Suspect]
     Active Substance: VON WILLEBRAND FACTOR HUMAN
     Dosage: 3900 INTERNATIONAL UNIT, SINGLE
     Route: 042
     Dates: start: 20201119, end: 20201119
  3. VON WILLEBRAND FACTOR HUMAN [Suspect]
     Active Substance: VON WILLEBRAND FACTOR HUMAN
     Dosage: 3900 INTERNATIONAL UNIT, 2/WEEK
     Route: 042
     Dates: start: 20210712, end: 20210918
  4. CONFACT F [Concomitant]
     Active Substance: ANTIHEMOPHILIC FACTOR HUMAN
     Indication: Haemorrhagic diathesis
     Dosage: 2000 INTERNATIONAL UNIT, 1/WEEK
     Route: 065
     Dates: start: 20201112, end: 20210709
  5. CONFACT F [Concomitant]
     Active Substance: ANTIHEMOPHILIC FACTOR HUMAN
     Indication: Haemostasis
  6. MINIRIN [Concomitant]
     Active Substance: DESMOPRESSIN ACETATE
     Indication: Von Willebrand^s disease
     Dosage: UNK
     Route: 065

REACTIONS (1)
  - Melaena [Recovering/Resolving]

NARRATIVE: CASE EVENT DATE: 20201119
